FAERS Safety Report 5852289-X (Version None)
Quarter: 2008Q3

REPORT INFORMATION
  Report Type: 
  Country: None (occurrence: None)
  Receive Date: 20080819
  Receipt Date: 20080812
  Transmission Date: 20090109
  Serious: Yes (Life-Threatening, Hospitalization)
  Sender: FDA-Public Use
  Company Number: TPA2008A00563

PATIENT
  Age: 57 Year
  Sex: Female
  Weight: 77.1115 kg

DRUGS (2)
  1. ACTOS (PIOGLITAZONF HYDROCHLORIDE) (30 MILLIGRAM, TABLETS) [Suspect]
     Indication: TYPE 2 DIABETES MELLITUS
     Dosage: 30 MG, 1 IN 1 D, PER ORAL; 15 MG, 1 IN 1 D, PER ORAL
     Route: 048
     Dates: start: 20070101, end: 20080101
  2. ACTOS (PIOGLITAZONF HYDROCHLORIDE) (30 MILLIGRAM, TABLETS) [Suspect]
     Indication: TYPE 2 DIABETES MELLITUS
     Dosage: 30 MG, 1 IN 1 D, PER ORAL; 15 MG, 1 IN 1 D, PER ORAL
     Route: 048
     Dates: start: 20080101, end: 20080401

REACTIONS (24)
  - ALOPECIA [None]
  - CHEST DISCOMFORT [None]
  - CONFUSIONAL STATE [None]
  - COUGH [None]
  - DEPRESSION [None]
  - FLUID RETENTION [None]
  - HAIR TEXTURE ABNORMAL [None]
  - HEADACHE [None]
  - HEART RATE INCREASED [None]
  - INSOMNIA [None]
  - JOINT SWELLING [None]
  - LACK OF SATIETY [None]
  - PULMONARY CONGESTION [None]
  - PULMONARY OEDEMA [None]
  - RHINORRHOEA [None]
  - SINUS DISORDER [None]
  - SKIN HYPERPIGMENTATION [None]
  - SPINAL CORD NEOPLASM [None]
  - STRESS [None]
  - SUICIDAL IDEATION [None]
  - SWELLING [None]
  - SWELLING FACE [None]
  - THINKING ABNORMAL [None]
  - WEIGHT INCREASED [None]
